FAERS Safety Report 18388847 (Version 1)
Quarter: 2020Q4

REPORT INFORMATION
  Report Type: Spontaneous
  Country: CN (occurrence: CN)
  Receive Date: 20201016
  Receipt Date: 20201016
  Transmission Date: 20210114
  Serious: Yes (Other)
  Sender: FDA-Public Use
  Company Number: CN-SUN PHARMACEUTICAL INDUSTRIES LTD-2020R1-264022

PATIENT
  Age: 84 Year
  Sex: Female
  Weight: 52 kg

DRUGS (4)
  1. HYDROXYCHLOROQUINE [Suspect]
     Active Substance: HYDROXYCHLOROQUINE
     Indication: COVID-19
     Dosage: 200 MILLIGRAM, BID
     Route: 065
  2. DARUNAVIR AND COBICISTAT [Concomitant]
     Active Substance: COBICISTAT\DARUNAVIR ETHANOLATE
     Indication: ANTIVIRAL TREATMENT
     Dosage: 800/150 MG
     Route: 065
  3. IRBESARTAN. [Concomitant]
     Active Substance: IRBESARTAN
     Indication: HYPERTENSION
     Dosage: 75 MILLIGRAM, BID
     Route: 065
  4. NIFEDIPINE. [Concomitant]
     Active Substance: NIFEDIPINE
     Indication: HYPERTENSION
     Dosage: 30 MILLIGRAM, BID
     Route: 048

REACTIONS (2)
  - Sinus bradycardia [Recovering/Resolving]
  - Electrocardiogram QT prolonged [Recovered/Resolved]
